FAERS Safety Report 18747321 (Version 1)
Quarter: 2021Q1

REPORT INFORMATION
  Report Type: Spontaneous
  Country: US (occurrence: US)
  Receive Date: 20210115
  Receipt Date: 20210115
  Transmission Date: 20210419
  Serious: No
  Sender: FDA-Public Use
  Company Number: US-ROCHE-2726452

PATIENT
  Age: 52 Year
  Sex: Female
  Weight: 52.21 kg

DRUGS (1)
  1. PHESGO [Suspect]
     Active Substance: HYALURONIDASE-ZZXF\PERTUZUMAB\TRASTUZUMAB
     Indication: TRIPLE POSITIVE BREAST CANCER
     Route: 058
     Dates: start: 20201123

REACTIONS (4)
  - Injection site extravasation [Unknown]
  - Underdose [Unknown]
  - No adverse event [Unknown]
  - Needle issue [Unknown]

NARRATIVE: CASE EVENT DATE: 20201123
